FAERS Safety Report 11812363 (Version 1)
Quarter: 2015Q4

REPORT INFORMATION
  Report Type: Spontaneous
  Country: US (occurrence: US)
  Receive Date: 20151208
  Receipt Date: 20151208
  Transmission Date: 20160305
  Serious: Yes (Other)
  Sender: FDA-Public Use
  Company Number: US-IMPAX LABORATORIES, INC-2015-IPXL-01232

PATIENT
  Age: 21 Year
  Sex: Female
  Weight: 51 kg

DRUGS (4)
  1. AZATHIOPRINE. [Suspect]
     Active Substance: AZATHIOPRINE
     Indication: SYSTEMIC LUPUS ERYTHEMATOSUS
     Dosage: 50 MG, DAILY
     Route: 065
     Dates: start: 20150320, end: 20150928
  2. CELLCEPT [Suspect]
     Active Substance: MYCOPHENOLATE MOFETIL\MYCOPHENOLATE MOFETIL HYDROCHLORIDE
     Indication: SYSTEMIC LUPUS ERYTHEMATOSUS
     Dosage: 1500 MG, BID
     Route: 065
     Dates: end: 20151003
  3. PREDNISONE. [Suspect]
     Active Substance: PREDNISONE
     Indication: SYSTEMIC LUPUS ERYTHEMATOSUS
     Dosage: (5-20MG) DAILY
     Route: 065
     Dates: start: 2009
  4. CHLOROQUINE PHOSPHATE. [Suspect]
     Active Substance: CHLOROQUINE PHOSPHATE
     Indication: SYSTEMIC LUPUS ERYTHEMATOSUS
     Dosage: (125-250MG) DAILY
     Route: 065
     Dates: start: 2014

REACTIONS (6)
  - Pre-eclampsia [Recovering/Resolving]
  - Preterm premature rupture of membranes [Recovering/Resolving]
  - Condition aggravated [Recovered/Resolved]
  - Urinary tract infection [Recovering/Resolving]
  - Exposure during pregnancy [Recovered/Resolved]
  - Amniotic cavity infection [Recovering/Resolving]

NARRATIVE: CASE EVENT DATE: 2014
